FAERS Safety Report 8741052 (Version 2)
Quarter: 2013Q1

REPORT INFORMATION
  Report Type: Spontaneous
  Country: US (occurrence: US)
  Receive Date: 20120824
  Receipt Date: 20130120
  Transmission Date: 20140127
  Serious: No
  Sender: FDA-Public Use
  Company Number: US-ASTRAZENECA-2011SE70619

PATIENT
  Age: 59 Year
  Sex: Female

DRUGS (5)
  1. SYMBICORT [Suspect]
     Dosage: 160/4.5 MCG, ONE INHALATION BID (TWO TIMES A DAY)
     Route: 055
  2. PRO AIR HFA [Concomitant]
     Dosage: 2 PUFFS Q 6 PM (EVERY 6 PM)
  3. ALBUTEROL HFA [Concomitant]
     Dosage: 2 PUFFS Q 6 PM (EVERY 6 PM)
  4. PROVENTIL HFA [Concomitant]
     Dosage: 2 PUFFS Q 6 PM
  5. SINGULAIR [Concomitant]
     Route: 048

REACTIONS (4)
  - Asthma [Unknown]
  - Chronic obstructive pulmonary disease [Unknown]
  - Back pain [Unknown]
  - Headache [Unknown]
